FAERS Safety Report 4301416-4 (Version None)
Quarter: 2004Q1

REPORT INFORMATION
  Report Type: 
  Country: None (occurrence: None)
  Receive Date: 20040219
  Receipt Date: 20040206
  Transmission Date: 20041129
  Serious: Yes (Hospitalization)
  Sender: FDA-Public Use
  Company Number: 2004198784FR

PATIENT
  Age: 22 Year
  Sex: Male
  Weight: 52 kg

DRUGS (18)
  1. SOLU-MEDROL [Suspect]
     Dosage: 40 MG, QD, IV
     Route: 042
     Dates: start: 20031220, end: 20040112
  2. RANITIDINE HYDROCHLORIDE [Suspect]
     Dosage: ORAL
     Route: 048
     Dates: start: 20031230, end: 20040102
  3. VISCERALGINE FORTE  (METAMIZOLE SODIUM, TIEMONIUM METHYLSULPHATE) [Suspect]
     Dosage: 1 DF, QD, ORAL
     Route: 048
     Dates: start: 20031221, end: 20031228
  4. ALLOPURINOL [Suspect]
     Dosage: 900 MG, ORAL
     Route: 048
     Dates: start: 20031221, end: 20031231
  5. CIPROFLOXACIN [Suspect]
     Dosage: 200 MG, BID, IV
     Route: 042
     Dates: start: 20031220, end: 20040102
  6. ONDANSETRON HCL [Suspect]
     Dosage: 16 MG, BID, IV
     Route: 042
     Dates: start: 20031220, end: 20031231
  7. ROCEPHIN [Suspect]
     Dates: start: 20031220
  8. ZOVIRAX [Suspect]
     Dates: start: 20031230
  9. PRIMPERAN TAB [Suspect]
     Dates: start: 20031220
  10. DUPHALAC [Suspect]
  11. ACUPAN [Suspect]
  12. TRIMEBUTINE (TRIMEBUTINE) [Suspect]
  13. MOPRAL [Concomitant]
  14. ONCOVIN [Concomitant]
  15. ENDOXAN [Concomitant]
  16. CERUBIDINE [Concomitant]
  17. METHOTREXATE [Concomitant]
  18. ARACYTINE [Concomitant]

REACTIONS (7)
  - ALANINE AMINOTRANSFERASE INCREASED [None]
  - ASPARTATE AMINOTRANSFERASE INCREASED [None]
  - BLOOD BILIRUBIN INCREASED [None]
  - CHOLESTASIS [None]
  - GAMMA-GLUTAMYLTRANSFERASE INCREASED [None]
  - HEPATOCELLULAR DAMAGE [None]
  - JAUNDICE [None]
